FAERS Safety Report 7120506-4 (Version None)
Quarter: 2010Q4

REPORT INFORMATION
  Report Type: 
  Country: None (occurrence: None)
  Receive Date: 20101119
  Receipt Date: 20101119
  Transmission Date: 20110411
  Serious: Yes (Life-Threatening)
  Sender: FDA-Public Use
  Company Number: None

PATIENT
  Age: 57 Year
  Sex: Female
  Weight: 97.0698 kg

DRUGS (2)
  1. PREVACOL [Suspect]
     Indication: BLOOD CHOLESTEROL
     Dosage: 40 MG DAILY
     Dates: start: 20071001
  2. PRAVASTATIN [Suspect]
     Dates: start: 20101012

REACTIONS (1)
  - PALPITATIONS [None]
